FAERS Safety Report 21239005 (Version 1)
Quarter: 2022Q3

REPORT INFORMATION
  Report Type: Spontaneous
  Country: DE (occurrence: DE)
  Receive Date: 20220822
  Receipt Date: 20220822
  Transmission Date: 20221027
  Serious: Yes (Hospitalization)
  Sender: FDA-Public Use
  Company Number: None

PATIENT
  Age: 65 Year
  Sex: Female
  Weight: 81 kg

DRUGS (2)
  1. PREGABALIN [Suspect]
     Active Substance: PREGABALIN
     Indication: Neuralgia
     Dosage: 100/0/75/75 MG
     Route: 048
     Dates: start: 20220511
  2. PREGABALIN [Suspect]
     Active Substance: PREGABALIN
     Indication: Animal bite
     Dosage: 100/0/75/75 MG
     Route: 048
     Dates: start: 20220511

REACTIONS (1)
  - Vertigo positional [Recovering/Resolving]

NARRATIVE: CASE EVENT DATE: 20220727
